FAERS Safety Report 5601929-9 (Version None)
Quarter: 2008Q1

REPORT INFORMATION
  Report Type: 
  Country: None (occurrence: None)
  Receive Date: 20080125
  Receipt Date: 20080114
  Transmission Date: 20080703
  Serious: Yes (Hospitalization)
  Sender: FDA-Public Use
  Company Number: FR-BAYER-200810910GPV

PATIENT
  Age: 30 Year
  Sex: Female

DRUGS (1)
  1. MIRENA [Suspect]
     Route: 015
     Dates: start: 20070101

REACTIONS (3)
  - ECTOPIC PREGNANCY [None]
  - PELVIC PAIN [None]
  - PERITONEAL HAEMORRHAGE [None]
